FAERS Safety Report 14225566 (Version 1)
Quarter: 2017Q4

REPORT INFORMATION
  Report Type: Spontaneous
  Country: US (occurrence: US)
  Receive Date: 20171126
  Receipt Date: 20171126
  Transmission Date: 20180321
  Serious: Yes (Other)
  Sender: FDA-Public Use
  Company Number: None

PATIENT
  Age: 71 Year
  Sex: Female
  Weight: 76.5 kg

DRUGS (9)
  1. WP THYROID [Concomitant]
     Active Substance: THYROID, PORCINE
  2. ATIVAN [Concomitant]
     Active Substance: LORAZEPAM
  3. ALEVE [Concomitant]
     Active Substance: NAPROXEN SODIUM
  4. CIPRO [Suspect]
     Active Substance: CIPROFLOXACIN HYDROCHLORIDE
     Indication: URINARY TRACT INFECTION
  5. MAXZIDE [Concomitant]
     Active Substance: HYDROCHLOROTHIAZIDE\TRIAMTERENE
  6. ASPIRIN. [Concomitant]
     Active Substance: ASPIRIN
  7. KLOR-CON [Concomitant]
     Active Substance: POTASSIUM CHLORIDE
  8. LEVAQUIN [Suspect]
     Active Substance: LEVOFLOXACIN
     Indication: URINARY TRACT INFECTION
     Dates: start: 20100706, end: 20170718
  9. OMEGA THREE [Concomitant]

REACTIONS (5)
  - Swelling [None]
  - Pain [None]
  - Joint swelling [None]
  - Gait inability [None]
  - Tendon disorder [None]

NARRATIVE: CASE EVENT DATE: 20110510
